FAERS Safety Report 25287943 (Version 2)
Quarter: 2025Q3

REPORT INFORMATION
  Report Type: Spontaneous
  Country: CA (occurrence: CA)
  Receive Date: 20250509
  Receipt Date: 20250708
  Transmission Date: 20251021
  Serious: Yes (Other)
  Sender: PFIZER
  Company Number: CA-PFIZER INC-202500093873

PATIENT
  Age: 36 Year
  Sex: Male

DRUGS (1)
  1. RUXIENCE [Suspect]
     Active Substance: RITUXIMAB-PVVR
     Indication: Glomerulonephritis membranous
     Route: 042
     Dates: start: 20250418

REACTIONS (3)
  - Pain [Unknown]
  - Pain in extremity [Unknown]
  - Malaise [Unknown]
